FAERS Safety Report 14539486 (Version 1)
Quarter: 2018Q1

REPORT INFORMATION
  Report Type: Spontaneous
  Country: US (occurrence: US)
  Receive Date: 20180215
  Receipt Date: 20180215
  Transmission Date: 20180509
  Serious: Yes (Hospitalization)
  Sender: FDA-Public Use
  Company Number: None

PATIENT
  Age: 82 Year
  Sex: Male
  Weight: 81 kg

DRUGS (3)
  1. DEPAKOTE [Suspect]
     Active Substance: DIVALPROEX SODIUM
     Indication: INFLUENZA
  2. AMLODAPINE [Concomitant]
  3. FLORINEF ACETATE [Concomitant]
     Active Substance: FLUDROCORTISONE ACETATE

REACTIONS (6)
  - Hypoacusis [None]
  - Blood pressure decreased [None]
  - Speech disorder [None]
  - Hallucination, visual [None]
  - Visual impairment [None]
  - Feeling abnormal [None]

NARRATIVE: CASE EVENT DATE: 20180115
